FAERS Safety Report 25922057 (Version 1)
Quarter: 2025Q4

REPORT INFORMATION
  Report Type: Spontaneous
  Country: US (occurrence: US)
  Receive Date: 20251015
  Receipt Date: 20251015
  Transmission Date: 20260118
  Serious: No
  Sender: SANDOZ
  Company Number: US-SANDOZ-SDZ2025US074835

PATIENT
  Age: 23 Year
  Sex: Female

DRUGS (1)
  1. ESTRADIOL [Suspect]
     Active Substance: ESTRADIOL
     Indication: Product used for unknown indication
     Dosage: 0.1MG/24H 8TTS
     Route: 062

REACTIONS (2)
  - Incorrect dose administered by device [Unknown]
  - Device adhesion issue [Unknown]

NARRATIVE: CASE EVENT DATE: 20250101
